FAERS Safety Report 4359640-0 (Version None)
Quarter: 2004Q2

REPORT INFORMATION
  Report Type: 
  Country: None (occurrence: None)
  Receive Date: 20040517
  Receipt Date: 20040517
  Transmission Date: 20050107
  Serious: Yes (Death)
  Sender: FDA-Public Use
  Company Number: None

PATIENT
  Age: 32 Year
  Sex: Male

DRUGS (2)
  1. OXYCONTIN [Suspect]
     Dosage: 40 MG AS NEEDED ORAL
     Route: 048
  2. ALCOHOL [Suspect]

REACTIONS (7)
  - ABNORMAL BEHAVIOUR [None]
  - ALCOHOL USE [None]
  - ANXIETY [None]
  - BACK PAIN [None]
  - DYSPNOEA [None]
  - HEART RATE INCREASED [None]
  - MEDICATION ERROR [None]
